FAERS Safety Report 19978139 (Version 1)
Quarter: 2021Q4

REPORT INFORMATION
  Report Type: Spontaneous
  Country: US (occurrence: US)
  Receive Date: 20211020
  Receipt Date: 20211020
  Transmission Date: 20220303
  Serious: No
  Sender: FDA-Public Use
  Company Number: None

PATIENT
  Sex: Male

DRUGS (1)
  1. RECOMBINATE [Suspect]
     Active Substance: ANTIHEMOPHILIC FACTOR, HUMAN RECOMBINANT
     Indication: Factor VIII deficiency
     Dosage: ?          OTHER DOSE:4000 UNITS ;
     Route: 042
     Dates: start: 20210130

REACTIONS (5)
  - Haemorrhage [None]
  - Localised infection [None]
  - Therapy non-responder [None]
  - Ingrowing nail [None]
  - Therapy interrupted [None]
